FAERS Safety Report 15428596 (Version 3)
Quarter: 2018Q4

REPORT INFORMATION
  Report Type: Spontaneous
  Country: US (occurrence: US)
  Receive Date: 20180926
  Receipt Date: 20181106
  Transmission Date: 20190204
  Serious: Yes (Life-Threatening)
  Sender: FDA-Public Use
  Company Number: US-ROCHE-2189392

PATIENT
  Age: 62 Year
  Sex: Male

DRUGS (3)
  1. OCREVUS [Suspect]
     Active Substance: OCRELIZUMAB
     Indication: PRIMARY PROGRESSIVE MULTIPLE SCLEROSIS
     Dosage: 300 MG TWO DOSES 14 DAYS APART, THEN 600 MG AT 6 MONTHS
     Route: 042
     Dates: start: 201708
  2. ACYCLOVIR. [Concomitant]
     Active Substance: ACYCLOVIR
  3. OCREVUS [Suspect]
     Active Substance: OCRELIZUMAB
     Route: 042
     Dates: start: 20180913

REACTIONS (2)
  - Seizure [Recovering/Resolving]
  - Meningoencephalitis herpetic [Recovering/Resolving]
